FAERS Safety Report 9270779 (Version 1)
Quarter: 2013Q2

REPORT INFORMATION
  Report Type: Spontaneous
  Country: US (occurrence: US)
  Receive Date: 20130503
  Receipt Date: 20130503
  Transmission Date: 20140414
  Serious: No
  Sender: FDA-Public Use
  Company Number: US-ASTRAZENECA-2013SE27953

PATIENT
  Age: 81 Year
  Sex: Male
  Weight: 91.6 kg

DRUGS (2)
  1. BRILINTA [Suspect]
     Indication: ANTIPLATELET THERAPY
     Dosage: UNKNOWN, BID
     Route: 048
     Dates: start: 20130101
  2. RENEXA [Concomitant]
     Indication: MYOCARDIAL INFARCTION
     Dosage: UNK, DAILY
     Route: 048
     Dates: start: 201301

REACTIONS (4)
  - Fall [Recovered/Resolved]
  - Impaired healing [Recovered/Resolved]
  - Excoriation [Unknown]
  - Contusion [Not Recovered/Not Resolved]
